FAERS Safety Report 4572491-7 (Version None)
Quarter: 2005Q1

REPORT INFORMATION
  Report Type: 
  Country: None (occurrence: None)
  Receive Date: 20050207
  Receipt Date: 20041011
  Transmission Date: 20050727
  Serious: Yes (Hospitalization)
  Sender: FDA-Public Use
  Company Number: DE-MERCK-0410DEU00348

PATIENT
  Age: 64 Year
  Sex: Male
  Weight: 88 kg

DRUGS (11)
  1. VIOXX [Suspect]
     Route: 048
     Dates: start: 20020201, end: 20020101
  2. VIOXX [Suspect]
     Route: 048
     Dates: start: 20020701, end: 20020101
  3. VIOXX [Suspect]
     Route: 048
     Dates: start: 20020101
  4. ATENOLOL [Concomitant]
     Indication: HYPERTENSION
     Route: 048
  5. CHLORDIAZEPOXIDE HYDROCHLORIDE [Concomitant]
     Route: 048
     Dates: start: 19740101
  6. CYCLANDELATE [Concomitant]
     Route: 048
  7. LEVOTHYROXINE SODIUM [Concomitant]
     Route: 048
  8. SUMATRIPTAN SUCCINATE [Concomitant]
     Route: 048
  9. DALTEPARIN SODIUM [Concomitant]
     Route: 065
  10. PANTOPRAZOLE SODIUM [Concomitant]
     Route: 065
  11. DICLOFENAC RESINATE [Suspect]
     Route: 048
     Dates: start: 20020601, end: 20020701

REACTIONS (5)
  - AGITATION [None]
  - BLOOD PRESSURE INCREASED [None]
  - DIZZINESS [None]
  - HEADACHE [None]
  - OSTEOARTHRITIS [None]
